FAERS Safety Report 8804431 (Version 2)
Quarter: 2013Q2

REPORT INFORMATION
  Report Type: Spontaneous
  Country: US (occurrence: US)
  Receive Date: 20120924
  Receipt Date: 20130618
  Transmission Date: 20140414
  Serious: Yes (Hospitalization)
  Sender: FDA-Public Use
  Company Number: US-BAYER-2012-097985

PATIENT
  Age: 18 Year
  Sex: Female

DRUGS (5)
  1. YAZ [Suspect]
  2. YASMIN [Suspect]
  3. OCELLA [Suspect]
  4. TYLENOL WITH CODEIN #3 [Concomitant]
  5. METFORMIN [Concomitant]

REACTIONS (2)
  - Injury [None]
  - Deep vein thrombosis [Recovered/Resolved]
